FAERS Safety Report 5891931-4 (Version None)
Quarter: 2008Q3

REPORT INFORMATION
  Report Type: 
  Country: None (occurrence: None)
  Receive Date: 20080922
  Receipt Date: 20080910
  Transmission Date: 20090109
  Serious: Yes (Death, Other)
  Sender: FDA-Public Use
  Company Number: FR-PFIZER INC-2008076766

PATIENT
  Sex: Male

DRUGS (4)
  1. ARTHROTEC [Suspect]
     Indication: TRAUMATIC HAEMATOMA
     Dates: start: 20070401
  2. PHYSIOTENS [Interacting]
     Indication: HYPERTENSION
  3. LOGIMAX [Interacting]
     Indication: HYPERTENSION
  4. EFFERALGAN [Concomitant]

REACTIONS (3)
  - ACUTE PULMONARY OEDEMA [None]
  - ACUTE RESPIRATORY FAILURE [None]
  - DRUG INTERACTION [None]
